FAERS Safety Report 10211528 (Version 1)
Quarter: 2014Q2

REPORT INFORMATION
  Report Type: Spontaneous
  Country: US (occurrence: US)
  Receive Date: 20140602
  Receipt Date: 20140602
  Transmission Date: 20141212
  Serious: No
  Sender: FDA-Public Use
  Company Number: US-PFIZER INC-2014150327

PATIENT
  Age: 2 Year
  Sex: Male

DRUGS (4)
  1. ZITHROMAX [Suspect]
     Indication: BRONCHITIS
     Dosage: (7.5ML ORAL SUSPENSION FOR THE FIRST DAY AND 4ML FOR 5 DAYS), UNK
     Route: 048
     Dates: start: 20140528, end: 20140528
  2. ZITHROMAX [Suspect]
     Indication: UPPER RESPIRATORY TRACT INFECTION
  3. ZITHROMAX [Suspect]
     Indication: PHARYNGITIS STREPTOCOCCAL
  4. ZITHROMAX [Suspect]
     Indication: ADENOIDITIS

REACTIONS (2)
  - Wrong technique in drug usage process [Unknown]
  - Vomiting [Unknown]
